FAERS Safety Report 6530296-1 (Version None)
Quarter: 2009Q4

REPORT INFORMATION
  Report Type: 
  Country: None (occurrence: None)
  Receive Date: 20091231
  Receipt Date: 20091218
  Transmission Date: 20100525
  Serious: Yes (Hospitalization)
  Sender: FDA-Public Use
  Company Number: 003461

PATIENT
  Sex: Female
  Weight: 79.5 kg

DRUGS (4)
  1. CIMZIA [Suspect]
     Indication: CROHN'S DISEASE
     Dosage: (SUBCUTANEOUS)
     Route: 058
     Dates: start: 20080101
  2. PRILOSEC [Concomitant]
  3. LEXAPRO [Concomitant]
  4. AMLODIPINE [Concomitant]

REACTIONS (4)
  - ESCHERICHIA URINARY TRACT INFECTION [None]
  - FUNGAL INFECTION [None]
  - NO THERAPEUTIC RESPONSE [None]
  - VAGINAL FISTULA [None]
